FAERS Safety Report 7560913-9 (Version None)
Quarter: 2011Q2

REPORT INFORMATION
  Report Type: 
  Country: None (occurrence: None)
  Receive Date: 20110621
  Receipt Date: 20110119
  Transmission Date: 20111010
  Serious: No
  Sender: FDA-Public Use
  Company Number: US-ASTRAZENECA-2010SE54632

PATIENT
  Age: 84 Year
  Sex: Female
  Weight: 77.1 kg

DRUGS (5)
  1. ATENOLOL [Concomitant]
  2. PLAVIX [Concomitant]
  3. ATACAND [Suspect]
     Indication: HYPERTENSION
     Route: 048
     Dates: start: 20080101, end: 20100901
  4. ATACAND HCT [Suspect]
     Indication: HYPERTENSION
     Dosage: DAILY DOSE OF 32/12.5
     Route: 048
     Dates: start: 20100901
  5. DILTIAZEM [Concomitant]

REACTIONS (3)
  - HYPERTENSION [None]
  - OEDEMA [None]
  - DRUG INEFFECTIVE [None]
